FAERS Safety Report 7296292-4 (Version None)
Quarter: 2011Q1

REPORT INFORMATION
  Report Type: 
  Country: None (occurrence: None)
  Receive Date: 20110216
  Receipt Date: 20110203
  Transmission Date: 20110831
  Serious: Yes (Hospitalization)
  Sender: FDA-Public Use
  Company Number: US-ELI_LILLY_AND_COMPANY-US201102003469

PATIENT
  Sex: Male
  Weight: 93.968 kg

DRUGS (11)
  1. TRICOR [Concomitant]
     Indication: BLOOD CHOLESTEROL INCREASED
     Dosage: 145 MG, DAILY (1/D)
     Route: 048
     Dates: start: 20100810, end: 20100811
  2. LIPITOR [Concomitant]
     Indication: CARDIAC DISORDER
     Dosage: 80 MG, DAILY (1/D)
     Route: 048
  3. TRILIPIX [Concomitant]
     Indication: BLOOD CHOLESTEROL
     Dosage: 135 MG, DAILY (1/D)
     Route: 048
  4. ALTACE [Concomitant]
     Indication: HYPERTENSION
     Dosage: 2.5 MG, DAILY (1/D)
     Route: 048
     Dates: start: 20100810
  5. ASPIRIN [Concomitant]
     Indication: ANTIPLATELET THERAPY
     Dosage: 325 MG, DAILY (1/D)
     Route: 048
     Dates: start: 20100809
  6. PRASUGREL HYDROCHLORIDE [Suspect]
     Dosage: 10 MG, DAILY (1/D)
     Dates: start: 20100810
  7. PEPCID [Concomitant]
     Indication: DYSPEPSIA
     Dosage: 20 MG, 2/D
     Route: 048
     Dates: start: 20100809
  8. NITROGLYCERIN [Concomitant]
     Indication: ANGINA PECTORIS
     Dosage: 0.4 MG, DAILY (1/D)
     Route: 048
     Dates: start: 20100809, end: 20100811
  9. BISOPROLOL [Concomitant]
     Indication: BLOOD PRESSURE
     Dosage: 2.5 MG, DAILY (1/D)
     Route: 048
     Dates: start: 20100810
  10. PRASUGREL HYDROCHLORIDE [Suspect]
     Indication: ACUTE CORONARY SYNDROME
     Dosage: 60 MG, ONCE
     Dates: start: 20100810, end: 20100810
  11. CRESTOR [Concomitant]
     Indication: BLOOD CHOLESTEROL
     Dosage: 20 MG, DAILY (1/D)
     Route: 048
     Dates: start: 20100810, end: 20100811

REACTIONS (1)
  - CORONARY REVASCULARISATION [None]
